FAERS Safety Report 8201268-6 (Version None)
Quarter: 2012Q1

REPORT INFORMATION
  Report Type: 
  Country: None (occurrence: None)
  Receive Date: 20120312
  Receipt Date: 20120306
  Transmission Date: 20120608
  Serious: Yes (Death, Hospitalization)
  Sender: FDA-Public Use
  Company Number: PHHY2012JP020176

PATIENT
  Age: 64 Year
  Sex: Male

DRUGS (1)
  1. AFINITOR [Suspect]
     Indication: METASTATIC RENAL CELL CARCINOMA
     Dosage: 5 MG, DAILY
     Route: 048
     Dates: start: 20120201, end: 20120304

REACTIONS (8)
  - METASTASES TO BONE [None]
  - ACUTE RESPIRATORY DISTRESS SYNDROME [None]
  - PLEURAL EFFUSION [None]
  - NECROTISING FASCIITIS [None]
  - PARALYSIS [None]
  - METASTASES TO LUNG [None]
  - PERFORMANCE STATUS DECREASED [None]
  - SEPSIS SYNDROME [None]
